FAERS Safety Report 5990685-0 (Version None)
Quarter: 2008Q4

REPORT INFORMATION
  Report Type: 
  Country: None (occurrence: None)
  Receive Date: 20081211
  Receipt Date: 20081203
  Transmission Date: 20090506
  Serious: Yes (Other)
  Sender: FDA-Public Use
  Company Number: PHHY2008BR30861

PATIENT
  Age: 73 Year
  Sex: Male

DRUGS (1)
  1. DIOVAN HCT [Suspect]
     Dosage: 80/12.5 MG

REACTIONS (3)
  - HYPOTENSION [None]
  - INFECTION [None]
  - PYREXIA [None]
